FAERS Safety Report 14331150 (Version 2)
Quarter: 2018Q1

REPORT INFORMATION
  Report Type: Spontaneous
  Country: US (occurrence: US)
  Receive Date: 20171228
  Receipt Date: 20180112
  Transmission Date: 20180509
  Serious: No
  Sender: FDA-Public Use
  Company Number: US-009507513-1712USA004319

PATIENT
  Sex: Female
  Weight: 164 kg

DRUGS (1)
  1. NEXPLANON [Suspect]
     Active Substance: ETONOGESTREL
     Indication: CONTRACEPTION
     Dosage: ONE ROD /EVERY 3 YEARS
     Route: 059
     Dates: start: 2016, end: 20171130

REACTIONS (3)
  - Discomfort [Recovered/Resolved]
  - Implant site pain [Recovered/Resolved]
  - Device breakage [Recovered/Resolved]
